FAERS Safety Report 23522686 (Version 1)
Quarter: 2024Q1

REPORT INFORMATION
  Report Type: Spontaneous
  Country: US (occurrence: None)
  Receive Date: 20240214
  Receipt Date: 20240214
  Transmission Date: 20240409
  Serious: Yes (Hospitalization)
  Sender: FDA-Public Use
  Company Number: None

PATIENT
  Age: 57 Year
  Sex: Female
  Weight: 85.8 kg

DRUGS (1)
  1. XELODA [Suspect]
     Active Substance: CAPECITABINE
     Dates: end: 20240202

REACTIONS (8)
  - COVID-19 [None]
  - Leukoencephalopathy [None]
  - Neurotoxicity [None]
  - Therapy cessation [None]
  - Hypoaesthesia oral [None]
  - Paraesthesia oral [None]
  - Dysarthria [None]
  - Aphasia [None]

NARRATIVE: CASE EVENT DATE: 20240203
